FAERS Safety Report 4641545-9 (Version None)
Quarter: 2005Q2

REPORT INFORMATION
  Report Type: 
  Country: None (occurrence: None)
  Receive Date: 20050421
  Receipt Date: 20050411
  Transmission Date: 20051028
  Serious: Yes (Life-Threatening, Hospitalization)
  Sender: FDA-Public Use
  Company Number: NO-BRISTOL-MYERS SQUIBB COMPANY-12935201

PATIENT
  Age: 75 Year
  Sex: Female

DRUGS (11)
  1. GLUCOPHAGE [Suspect]
     Indication: DIABETES MELLITUS NON-INSULIN-DEPENDENT
     Route: 048
  2. MAREVAN [Concomitant]
     Indication: ATRIAL FIBRILLATION
     Route: 048
  3. ZYPREXA [Concomitant]
     Indication: BIPOLAR I DISORDER
     Route: 048
  4. ENALAPRIL MALEATE [Concomitant]
     Indication: CARDIAC FAILURE
     Route: 048
  5. LASIX [Concomitant]
     Indication: CARDIAC FAILURE
     Route: 048
  6. LIPITOR [Concomitant]
     Indication: CARDIAC FAILURE
     Route: 048
  7. DIGITOXIN TAB [Concomitant]
     Indication: CARDIAC FAILURE
     Route: 048
  8. LEVAXIN [Concomitant]
     Indication: HYPOTHYROIDISM
     Route: 048
  9. SPIRIX [Concomitant]
     Indication: CARDIAC FAILURE
     Route: 048
  10. SELO-ZOK TABS [Concomitant]
     Indication: CARDIAC FAILURE
     Route: 048
  11. MINDIAB [Concomitant]
     Indication: DIABETES MELLITUS NON-INSULIN-DEPENDENT
     Route: 048

REACTIONS (3)
  - BLOOD CREATININE INCREASED [None]
  - HYPOTHERMIA [None]
  - LACTIC ACIDOSIS [None]
